FAERS Safety Report 23347165 (Version 1)
Quarter: 2023Q4

REPORT INFORMATION
  Report Type: Spontaneous
  Country: US (occurrence: None)
  Receive Date: 20231227
  Receipt Date: 20231227
  Transmission Date: 20240110
  Serious: Yes (Hospitalization)
  Sender: FDA-Public Use
  Company Number: None

PATIENT
  Age: 59 Year
  Sex: Female

DRUGS (53)
  1. TERIFLUNOMIDE [Suspect]
     Active Substance: TERIFLUNOMIDE
     Indication: Multiple sclerosis
     Route: 048
     Dates: start: 20230428
  2. AIMOVIG INJ [Concomitant]
  3. ALBUTEROL NEB [Concomitant]
  4. AMMONIUM LAC LOT [Concomitant]
  5. ARIPIPRAZOLE TAB [Concomitant]
  6. ASPIRIN TAB [Concomitant]
  7. AUBAGIO TAB [Concomitant]
  8. BACLOFEN TAB MG [Concomitant]
  9. BACLOFEN TAB 20MG [Concomitant]
  10. BAQSSIMI ONE POW 3MG/DOSE [Concomitant]
  11. BENTYL TAB 20MG [Concomitant]
  12. BENZTROPINE TAB 1MG [Concomitant]
  13. BREO ELLIPTA INH [Concomitant]
  14. CICLOPIROX SOL 8% [Concomitant]
  15. DONEPEZIL TAB 10MG [Concomitant]
  16. DONEPEZIL TAB HCL 23MG [Concomitant]
  17. DOXEPIN HCL CON 10MG/ML [Concomitant]
  18. EPINEPHRINE INJ 0.3MG [Concomitant]
  19. ESTRADIOL DIS 0.025MG [Concomitant]
  20. FLUTICASONE SPR 50MCG [Concomitant]
  21. FOLIC ACID TAB 1MG [Concomitant]
  22. FREESTYLE KIT FREEDOM [Concomitant]
  23. HUMALOG KWIK INJ 100/ML [Concomitant]
  24. HYDROXYCHLOROQUINE [Concomitant]
     Active Substance: HYDROXYCHLOROQUINE
  25. IPRATROPIUM SOL 0.02% [Concomitant]
  26. KEPPRA TAB 1000MG [Concomitant]
  27. LANTUS INJ 100/ML [Concomitant]
  28. LANTUS SOLOS INJ 100/ML [Concomitant]
  29. LEVETIRACETA TAB 500MG [Concomitant]
  30. LISINOPRIL TAB 10MG [Concomitant]
  31. LISINOPRIL TAB 20MG [Concomitant]
  32. LOPERAMIDE CAP 2MG [Concomitant]
  33. LOPERAMIDE SUS 1MG/7.5 [Concomitant]
  34. LYRICA CAP 100MG [Concomitant]
  35. LYRICA CAP 75MG [Concomitant]
  36. MONTELUKAST TAB 10MG [Concomitant]
  37. MYRBETRIQ TAB 25MG [Concomitant]
  38. PANTOPRAZOLE TAB 20MG [Concomitant]
  39. PANTOPRAZOLE TAB40MG [Concomitant]
  40. PREDNISONE TAB 10MG [Concomitant]
  41. SERTRALINE TAB 100MG [Concomitant]
  42. SERTRALINE TAB50MG [Concomitant]
  43. SIMVASTATIN TAB 20MG [Concomitant]
  44. SIMBASTATIN TAB40MG [Concomitant]
  45. SINGULAIR TAB 10MG [Concomitant]
  46. TIZANIDINE TAB4MG [Concomitant]
  47. TOPIRAMATE TAB 50MG [Concomitant]
  48. TRULICITY INJ 1.5/0.5 [Concomitant]
  49. TYLENOL CAP 325MG [Concomitant]
  50. TYLENOL TAB 500MG [Concomitant]
  51. VENTOLIN HFA AER [Concomitant]
  52. VIBERZI TAB 100MG [Concomitant]
  53. XOLAIR INJ 150MG [Concomitant]

REACTIONS (2)
  - Multiple sclerosis relapse [None]
  - Fall [None]

NARRATIVE: CASE EVENT DATE: 20231201
